FAERS Safety Report 20440494 (Version 2)
Quarter: 2022Q2

REPORT INFORMATION
  Report Type: Spontaneous
  Country: US (occurrence: US)
  Receive Date: 20220207
  Receipt Date: 20220511
  Transmission Date: 20220721
  Serious: Yes (Other)
  Sender: FDA-Public Use
  Company Number: US-Vifor (International) Inc.-VIT-2022-00687

PATIENT
  Sex: Female
  Weight: 64.468 kg

DRUGS (6)
  1. VELTASSA [Suspect]
     Active Substance: PATIROMER
     Indication: Blood potassium increased
     Route: 048
     Dates: start: 2020
  2. MECLIZINE [Concomitant]
     Active Substance: MECLIZINE HYDROCHLORIDE
  3. FLECAINIDE [Concomitant]
     Active Substance: FLECAINIDE
  4. AMLODIPINE [Concomitant]
     Active Substance: AMLODIPINE BESYLATE
  5. METOPROLOL [Concomitant]
     Active Substance: METOPROLOL
  6. GLYBURIDE [Concomitant]
     Active Substance: GLYBURIDE

REACTIONS (9)
  - Skin cancer [Unknown]
  - Haemorrhage subcutaneous [Unknown]
  - Rash macular [Not Recovered/Not Resolved]
  - Contusion [Unknown]
  - Vein discolouration [Unknown]
  - Vasodilatation [Unknown]
  - Blood potassium abnormal [Unknown]
  - Peripheral swelling [Unknown]
  - Off label use [Unknown]

NARRATIVE: CASE EVENT DATE: 20200101
